FAERS Safety Report 19732372 (Version 1)
Quarter: 2021Q3

REPORT INFORMATION
  Report Type: Spontaneous
  Country: NL (occurrence: NL)
  Receive Date: 20210822
  Receipt Date: 20210822
  Transmission Date: 20211014
  Serious: Yes (Other)
  Sender: FDA-Public Use
  Company Number: NL-TEVA-2021-NL-1943365

PATIENT
  Age: 42 Year
  Sex: Female
  Weight: 70 kg

DRUGS (4)
  1. ALENDRONINEZUUR TABLET 70MG / BRAND NAME NOT SPECIFIED [Suspect]
     Active Substance: ALENDRONIC ACID
     Dosage: THERAPY END DATE: ASKU
     Route: 065
     Dates: start: 2018
  2. ANASTROZOL TABLET 1MG / BRAND NAME NOT SPECIFIED [Concomitant]
     Dosage: 1 MG, THERAPY START AND END DATE: ASKU
  3. ANASTROZOL TABLET 1MG / BRAND NAME NOT SPECIFIED [Suspect]
     Active Substance: ANASTROZOLE
     Indication: PRODUCT USED FOR UNKNOWN INDICATION
     Dosage: THERAPY END DATE: ASKU
     Route: 065
     Dates: start: 2017
  4. ALENDRONINEZUUR TABLET 70MG / BRAND NAME NOT SPECIFIED [Concomitant]
     Active Substance: ALENDRONIC ACID
     Dosage: 70 MG, THERAPY START AND END DATE: ASKU

REACTIONS (2)
  - Arrhythmia [Not Recovered/Not Resolved]
  - Fatigue [Not Recovered/Not Resolved]

NARRATIVE: CASE EVENT DATE: 20210617
